FAERS Safety Report 5733138-7 (Version None)
Quarter: 2008Q2

REPORT INFORMATION
  Report Type: 
  Country: None (occurrence: None)
  Receive Date: 20080509
  Receipt Date: 20080429
  Transmission Date: 20081010
  Serious: Yes (Hospitalization)
  Sender: FDA-Public Use
  Company Number: GB-AMGEN-UK277103

PATIENT
  Sex: Male
  Weight: 71.8 kg

DRUGS (16)
  1. NEULASTA [Suspect]
     Indication: CHEMOTHERAPY
     Route: 058
     Dates: start: 20080417, end: 20080417
  2. GEMCITABINE [Concomitant]
     Route: 042
     Dates: start: 20080409, end: 20080416
  3. CYCLOPHOSPHAMIDE [Concomitant]
     Route: 042
     Dates: start: 20080409, end: 20080409
  4. VINCRISTINE [Concomitant]
     Route: 042
     Dates: start: 20080409, end: 20080409
  5. RITUXIMAB [Concomitant]
     Route: 042
     Dates: start: 20080409, end: 20080409
  6. PREDNISOLONE [Concomitant]
     Route: 048
     Dates: start: 20080409, end: 20080413
  7. FUROSEMIDE [Concomitant]
     Route: 048
  8. WARFARIN SODIUM [Concomitant]
     Route: 048
  9. CO-TRIMOXAZOLE [Concomitant]
     Route: 048
     Dates: start: 20080411
  10. ALLOPURINOL [Concomitant]
     Route: 048
     Dates: start: 20080409
  11. METOCLOPROMIDE [Concomitant]
     Route: 048
     Dates: start: 20080409
  12. DIGOXIN [Concomitant]
     Route: 048
  13. RAMIPRIL [Concomitant]
     Route: 048
  14. ATORVASTATIN CALCIUM [Concomitant]
     Route: 048
  15. BISOPROLOL FUMARATE [Concomitant]
     Route: 048
  16. ACETAMINOPHEN W/ CODEINE [Concomitant]
     Route: 048
     Dates: start: 20080421

REACTIONS (4)
  - ANGINA PECTORIS [None]
  - BACK PAIN [None]
  - INFECTION [None]
  - MUSCLE SPASMS [None]
